FAERS Safety Report 13499182 (Version 1)
Quarter: 2017Q2

REPORT INFORMATION
  Report Type: Report from Study
  Country: HU (occurrence: HU)
  Receive Date: 20170501
  Receipt Date: 20170501
  Transmission Date: 20170830
  Serious: Yes (Other)
  Sender: FDA-Public Use
  Company Number: HU-MYLANLABS-2017M1025898

PATIENT

DRUGS (1)
  1. LIPIDIL [Suspect]
     Active Substance: FENOFIBRATE
     Indication: LIPID METABOLISM DISORDER
     Dosage: 1 DF, QD
     Route: 048

REACTIONS (1)
  - Breast swelling [Not Recovered/Not Resolved]
